FAERS Safety Report 5709287-6 (Version None)
Quarter: 2008Q2

REPORT INFORMATION
  Report Type: 
  Country: None (occurrence: None)
  Receive Date: 20080418
  Receipt Date: 20070510
  Transmission Date: 20081010
  Serious: No
  Sender: FDA-Public Use
  Company Number: FR-PFIZER INC-2007038803

PATIENT
  Age: 67 Year
  Sex: Female

DRUGS (3)
  1. GABAPENTIN [Suspect]
     Indication: ANALGESIA
  2. NAPROXEN [Suspect]
     Dosage: DAILY DOSE:550MG
  3. AMITRIPTYLINE HCL [Suspect]
     Dosage: DAILY DOSE:100MG

REACTIONS (1)
  - NO ADVERSE EVENT [None]
